FAERS Safety Report 4760469-X (Version None)
Quarter: 2005Q3

REPORT INFORMATION
  Report Type: 
  Country: None (occurrence: None)
  Receive Date: 20050902
  Receipt Date: 20050825
  Transmission Date: 20060218
  Serious: Yes (Death, Hospitalization)
  Sender: FDA-Public Use
  Company Number: CA-MERCK-0508CAN00184

PATIENT
  Age: 78 Year
  Sex: Male
  Weight: 106 kg

DRUGS (9)
  1. VIOXX [Suspect]
     Indication: ARTHRITIS
     Route: 048
     Dates: end: 20031110
  2. CAPECITABINE [Suspect]
     Route: 048
     Dates: start: 20030923, end: 20031104
  3. OXALIPLATIN [Suspect]
     Indication: COLON CANCER
     Route: 042
     Dates: start: 20030923, end: 20031021
  4. WARFARIN SODIUM [Concomitant]
     Indication: ATRIAL FIBRILLATION
     Route: 065
     Dates: start: 19880615, end: 20031108
  5. VITAMIN E [Concomitant]
     Route: 065
  6. ASCORBIC ACID [Concomitant]
     Route: 065
  7. VITAMINS (UNSPECIFIED) [Concomitant]
     Route: 065
  8. VITAMIN B COMPLEX [Concomitant]
     Route: 065
     Dates: end: 20030923
  9. [THERAPY UNSPECIFIED] [Concomitant]
     Indication: ANAEMIA
     Route: 065
     Dates: end: 20030923

REACTIONS (17)
  - ATHEROSCLEROSIS [None]
  - BENIGN PROSTATIC HYPERPLASIA [None]
  - BLISTER [None]
  - COAGULOPATHY [None]
  - COMA [None]
  - CONFUSIONAL STATE [None]
  - DEHYDRATION [None]
  - DIARRHOEA [None]
  - GASTRITIS EROSIVE [None]
  - HAEMATEMESIS [None]
  - HYPOVOLAEMIC SHOCK [None]
  - NAUSEA [None]
  - ORAL INTAKE REDUCED [None]
  - RENAL CYST [None]
  - SOMNOLENCE [None]
  - UPPER GASTROINTESTINAL HAEMORRHAGE [None]
  - VOMITING [None]
